FAERS Safety Report 6167256-9 (Version None)
Quarter: 2009Q2

REPORT INFORMATION
  Report Type: 
  Country: None (occurrence: None)
  Receive Date: 20090424
  Receipt Date: 20090416
  Transmission Date: 20091009
  Serious: Yes (Hospitalization)
  Sender: FDA-Public Use
  Company Number: US-ELI_LILLY_AND_COMPANY-US200904003712

PATIENT
  Age: 45 Year
  Sex: Male

DRUGS (3)
  1. HUMALOG [Suspect]
     Dosage: 60 U, UNK
     Dates: start: 20090326
  2. HUMALOG [Suspect]
  3. NOVOLIN [Concomitant]

REACTIONS (3)
  - BLOOD GLUCOSE DECREASED [None]
  - HYPOGLYCAEMIC COMA [None]
  - VISUAL IMPAIRMENT [None]
